FAERS Safety Report 4546832-0 (Version None)
Quarter: 2005Q1

REPORT INFORMATION
  Report Type: 
  Country: None (occurrence: None)
  Receive Date: 20050105
  Receipt Date: 20041224
  Transmission Date: 20050727
  Serious: Yes (Hospitalization)
  Sender: FDA-Public Use
  Company Number: 2004093988

PATIENT
  Age: 3 Year
  Sex: Male
  Weight: 11.3 kg

DRUGS (1)
  1. SOMATROPIN POWDER, STERILE (SOMATROPIN) [Suspect]
     Indication: HYPOPITUITARISM
     Dosage: 0.4 MG (UNK, INJECTET SIX DAY/WEEKLY); SUBCUTANEOUS
     Route: 058
     Dates: start: 20030414

REACTIONS (3)
  - DEPRESSED LEVEL OF CONSCIOUSNESS [None]
  - HYPOGLYCAEMIA [None]
  - NASOPHARYNGITIS [None]
